FAERS Safety Report 8983806 (Version 1)
Quarter: 2012Q4

REPORT INFORMATION
  Report Type: 
  Country: CH (occurrence: CH)
  Receive Date: 20121224
  Receipt Date: 20121224
  Transmission Date: 20130627
  Serious: Yes (Hospitalization)
  Sender: FDA-Public Use
  Company Number: CH-ROCHE-1172093

PATIENT
  Age: 71 Year
  Sex: Female

DRUGS (3)
  1. MABTHERA [Suspect]
     Indication: PRODUCT USED FOR UNKNOWN INDICATION
     Dosage: 2 total
     Route: 042
     Dates: start: 20080515, end: 20080605
  2. MABTHERA [Suspect]
     Route: 065
     Dates: start: 20080615
  3. PREDNISONE [Suspect]
     Indication: PRODUCT USED FOR UNKNOWN INDICATION
     Route: 065

REACTIONS (3)
  - Skin infection [Recovered/Resolved]
  - Arthritis infective [Unknown]
  - Bronchopneumonia [Recovered/Resolved]
